FAERS Safety Report 6727655-0 (Version None)
Quarter: 2010Q2

REPORT INFORMATION
  Report Type: 
  Country: None (occurrence: None)
  Receive Date: 20100512
  Receipt Date: 20100426
  Transmission Date: 20101027
  Serious: Yes (Other)
  Sender: FDA-Public Use
  Company Number: DKLU1062037

PATIENT
  Age: 53 Year
  Sex: Female

DRUGS (5)
  1. COSMEGEN [Suspect]
     Indication: CHORIOCARCINOMA
     Dosage: INTRAVENOUS
     Route: 042
  2. METHOTREXATE [Concomitant]
  3. ETOPOSIDE [Concomitant]
  4. CYCLOPHOSPHAMIDE [Concomitant]
  5. ONCOVIN (VINCRISTINE SULFATE) (INJECTION) [Concomitant]

REACTIONS (2)
  - LUNG NEOPLASM MALIGNANT [None]
  - UTERINE LEIOMYOMA [None]
